FAERS Safety Report 4790403-8 (Version None)
Quarter: 2005Q4

REPORT INFORMATION
  Report Type: 
  Country: None (occurrence: None)
  Receive Date: 20051006
  Receipt Date: 20050512
  Transmission Date: 20060501
  Serious: Yes (Other)
  Sender: FDA-Public Use
  Company Number: 200511401JP

PATIENT
  Age: 61 Year
  Sex: Female
  Weight: 49.5 kg

DRUGS (3)
  1. KETEK [Suspect]
     Indication: PHARYNGOTONSILLITIS
     Route: 048
     Dates: start: 20040506, end: 20040506
  2. EMPYNASE [Concomitant]
     Indication: UPPER RESPIRATORY TRACT INFECTION
     Dosage: DOSE: 2 TABLETS
     Route: 048
     Dates: start: 20040506, end: 20040511
  3. ROCEPHIN [Concomitant]
     Indication: PHARYNGOTONSILLITIS
     Route: 042
     Dates: start: 20040506, end: 20040506

REACTIONS (5)
  - CONVULSION [None]
  - FALL [None]
  - HYPOTENSION [None]
  - LOSS OF CONSCIOUSNESS [None]
  - SYNCOPE [None]
